FAERS Safety Report 10285881 (Version 3)
Quarter: 2014Q3

REPORT INFORMATION
  Report Type: Spontaneous
  Country: US (occurrence: None)
  Receive Date: 20140703
  Receipt Date: 20140903
  Transmission Date: 20150326
  Serious: Yes (Death, Hospitalization, Other)
  Sender: FDA-Public Use
  Company Number: UNT-2014-002758

PATIENT
  Age: 68 Year
  Sex: Female
  Weight: 70.8 kg

DRUGS (3)
  1. REMODULIN [Suspect]
     Active Substance: TREPROSTINIL
     Indication: PULMONARY ARTERIAL HYPERTENSION
     Route: 058
     Dates: start: 20131112
  2. LETAIRIS [Concomitant]
     Active Substance: AMBRISENTAN
  3. REVATIO (SILDENAFIL CITRATE) [Concomitant]

REACTIONS (5)
  - Sepsis [None]
  - Pneumonia [None]
  - Colitis ischaemic [None]
  - Clostridium difficile infection [None]
  - Diarrhoea [None]

NARRATIVE: CASE EVENT DATE: 201406
